FAERS Safety Report 23805645 (Version 1)
Quarter: 2024Q2

REPORT INFORMATION
  Report Type: Spontaneous
  Country: GB (occurrence: GB)
  Receive Date: 20240502
  Receipt Date: 20240502
  Transmission Date: 20240715
  Serious: Yes (Other)
  Sender: FDA-Public Use
  Company Number: None

PATIENT
  Age: 77 Year
  Sex: Female
  Weight: 82 kg

DRUGS (30)
  1. ZOLEDRONIC ACID [Suspect]
     Active Substance: ZOLEDRONIC ACID
     Dosage: /100ML,
     Route: 065
     Dates: start: 20240410, end: 20240410
  2. FENTANYL [Concomitant]
     Active Substance: FENTANYL\FENTANYL CITRATE
     Dosage: 20-100 MICROGRAM,
     Dates: start: 20240314, end: 20240328
  3. CHLORHEXIDINE GLUCONATE [Concomitant]
     Active Substance: CHLORHEXIDINE GLUCONATE
     Dosage: APPLICATION,
     Dates: start: 20240329, end: 20240403
  4. OXYCODONE HYDROCHLORIDE [Concomitant]
     Active Substance: OXYCODONE HYDROCHLORIDE
     Dates: start: 20240315
  5. TINZAPARIN [Concomitant]
     Active Substance: TINZAPARIN
     Dates: start: 20240403
  6. SENNA [Concomitant]
     Active Substance: SENNA LEAF\SENNOSIDES\SENNOSIDES A AND B
     Dates: start: 20240403
  7. CARBOCYSTEINE [Concomitant]
     Active Substance: CARBOCYSTEINE
     Dates: start: 20240318
  8. SODIUM CHLORIDE [Concomitant]
     Active Substance: SODIUM CHLORIDE
     Dates: start: 20240319
  9. AMOXICILLIN [Concomitant]
     Active Substance: AMOXICILLIN
     Dates: start: 20240321, end: 20240327
  10. MUPIROCIN [Concomitant]
     Active Substance: MUPIROCIN
     Dosage: APPLICATION,
     Dates: start: 20240329, end: 20240404
  11. NICOTINE [Concomitant]
     Active Substance: NICOTINE
     Dosage: PIECE,
     Dates: start: 20240313, end: 20240313
  12. LACTULOSE [Concomitant]
     Active Substance: LACTULOSE
     Dates: start: 20240314, end: 20240318
  13. NICOTINELL [Concomitant]
     Active Substance: NICOTINE
     Dosage: PATCH,
     Dates: start: 20240316, end: 20240403
  14. CHLORPHENIRAMINE MALEATE [Concomitant]
     Active Substance: CHLORPHENIRAMINE MALEATE
     Dates: start: 20240412
  15. ACETAMINOPHEN [Concomitant]
     Active Substance: ACETAMINOPHEN
     Dates: start: 20240410
  16. CHOLECALCIFEROL [Concomitant]
     Active Substance: CHOLECALCIFEROL
     Dates: start: 20240319
  17. SANDO-K [Concomitant]
     Dates: start: 20240318, end: 20240318
  18. PAROXETINE [Concomitant]
     Active Substance: PAROXETINE
     Dates: start: 20221216
  19. MACROGOL COMPOUND [Concomitant]
     Dosage: SACHET
     Dates: start: 20240318
  20. NITROFURANTOIN [Concomitant]
     Active Substance: NITROFURANTOIN
     Dates: start: 20240315, end: 20240319
  21. PIPERACILLIN [Concomitant]
     Active Substance: PIPERACILLIN
     Dates: start: 20240319, end: 20240321
  22. DERMOL [Concomitant]
     Active Substance: BENZALKONIUM CHLORIDE\CHLORHEXIDINE HYDROCHLORIDE\ISOPROPYL MYRISTATE\PARAFFIN
     Dosage: APPLICATION
     Dates: start: 20240410
  23. PLASMA-LYTE 148 [Concomitant]
     Active Substance: MAGNESIUM CHLORIDE\POTASSIUM CHLORIDE\SODIUM ACETATE\SODIUM CHLORIDE\SODIUM GLUCONATE
     Dates: start: 20240313, end: 20240313
  24. OMEPRAZOLE [Concomitant]
     Active Substance: OMEPRAZOLE
     Dates: start: 20221216
  25. CARBOHYDRATES\FATTY ACIDS\MINERALS\PROTEIN\VITAMINS [Concomitant]
     Active Substance: CARBOHYDRATES\FATTY ACIDS\MINERALS\PROTEIN\VITAMINS
     Dates: start: 20240315, end: 20240403
  26. AMDINOCILLIN PIVOXIL [Concomitant]
     Active Substance: AMDINOCILLIN PIVOXIL
     Dates: start: 20240414
  27. ONDANSETRON [Concomitant]
     Active Substance: ONDANSETRON
     Dates: start: 20240314
  28. MORPHINE SULFATE [Concomitant]
     Active Substance: MORPHINE SULFATE
     Dosage: 1.25-2.5 MG,
     Dates: start: 20240313, end: 20240314
  29. DIHYDROCODEINE [Concomitant]
     Active Substance: DIHYDROCODEINE
     Dates: start: 20240313
  30. CLARITHROMYCIN [Concomitant]
     Active Substance: CLARITHROMYCIN
     Indication: Cellulitis
     Dates: start: 20240124, end: 20240207

REACTIONS (2)
  - Rash papular [Recovering/Resolving]
  - Angioedema [Recovering/Resolving]
